FAERS Safety Report 7904808-7 (Version None)
Quarter: 2011Q4

REPORT INFORMATION
  Report Type: 
  Country: None (occurrence: None)
  Receive Date: 20111109
  Receipt Date: 20111025
  Transmission Date: 20120403
  Serious: Yes (Hospitalization)
  Sender: FDA-Public Use
  Company Number: PHHY2011TW94670

PATIENT
  Sex: Male
  Weight: 73 kg

DRUGS (2)
  1. NEORAL [Suspect]
     Indication: LIVER TRANSPLANT
     Dosage: 250 MG, UNK
     Dates: start: 20110304
  2. NEORAL [Suspect]
     Dosage: 100 MG, UNK

REACTIONS (6)
  - ASPARTATE AMINOTRANSFERASE INCREASED [None]
  - ALANINE AMINOTRANSFERASE INCREASED [None]
  - HYPERLIPIDAEMIA [None]
  - BLOOD CHOLESTEROL INCREASED [None]
  - BLOOD POTASSIUM INCREASED [None]
  - IMMUNOSUPPRESSANT DRUG LEVEL INCREASED [None]
